FAERS Safety Report 7251181-6 (Version None)
Quarter: 2011Q1

REPORT INFORMATION
  Report Type: 
  Country: None (occurrence: None)
  Receive Date: 20110119
  Receipt Date: 20110112
  Transmission Date: 20110831
  Serious: Yes (Hospitalization)
  Sender: FDA-Public Use
  Company Number: VAL_00508_2011

PATIENT
  Age: 87 Year
  Sex: Male

DRUGS (15)
  1. CYCLIZINE [Concomitant]
  2. LEVOTHYROXINE SODIUM [Concomitant]
  3. SANDO K /00031402/ [Concomitant]
  4. CO-CODAMOL [Concomitant]
  5. TAZOCIN [Concomitant]
  6. SIMVASTATIN [Concomitant]
  7. FLUOXETINE [Concomitant]
  8. HYDROCORTISONE [Concomitant]
  9. MORPHINE [Concomitant]
  10. FERROUS SULFATE TAB [Concomitant]
  11. AMLODIPINE [Concomitant]
  12. CETIRIZINE [Concomitant]
  13. CARBOCISTEINE [Concomitant]
  14. ROCALTROL [Suspect]
     Indication: PRODUCT USED FOR UNKNOWN INDICATION
     Dosage: (0.5 ?G QD ORAL)
     Route: 048
  15. OMEPRAZOLE [Concomitant]

REACTIONS (1)
  - CEREBROVASCULAR ACCIDENT [None]
